FAERS Safety Report 25452542 (Version 1)
Quarter: 2025Q2

REPORT INFORMATION
  Report Type: Spontaneous
  Country: BR (occurrence: BR)
  Receive Date: 20250618
  Receipt Date: 20250618
  Transmission Date: 20250716
  Serious: Yes (Death, Other)
  Sender: ROCHE
  Company Number: BR-BoehringerIngelheim-2025-BI-072539

PATIENT
  Age: 59 Year
  Sex: Male
  Weight: 71 kg

DRUGS (4)
  1. ALTEPLASE [Suspect]
     Active Substance: ALTEPLASE
     Indication: Cerebrovascular accident
     Route: 042
     Dates: start: 20250521, end: 20250521
  2. ENALAPRIL [Suspect]
     Active Substance: ENALAPRIL
     Indication: Hypertension
     Dosage: CONTINUOUS USE
     Route: 048
  3. METFORMIN HYDROCHLORIDE [Concomitant]
     Active Substance: METFORMIN HYDROCHLORIDE
     Indication: Product used for unknown indication
  4. ASCORBIC ACID [Concomitant]
     Active Substance: ASCORBIC ACID
     Indication: Product used for unknown indication

REACTIONS (7)
  - Cardiogenic shock [Fatal]
  - Acute myocardial infarction [Fatal]
  - Respiratory distress [Unknown]
  - Angioedema [Recovered/Resolved]
  - Respiratory failure [Unknown]
  - Restlessness [Unknown]
  - Product quality issue [Unknown]

NARRATIVE: CASE EVENT DATE: 20250521
